FAERS Safety Report 7454459-6 (Version None)
Quarter: 2011Q1

REPORT INFORMATION
  Report Type: 
  Country: None (occurrence: None)
  Receive Date: 20110302
  Receipt Date: 20110114
  Transmission Date: 20110831
  Serious: No
  Sender: FDA-Public Use
  Company Number: 025663

PATIENT
  Sex: Female
  Weight: 77.5 kg

DRUGS (6)
  1. FIORICET [Concomitant]
  2. BUSPAR [Concomitant]
  3. TRAZODONE HCL [Concomitant]
  4. PAXIL [Concomitant]
  5. MONOCHLORACETIC ACID [Concomitant]
  6. CIMZIA [Suspect]
     Indication: CROHN'S DISEASE
     Dosage: 400 MG 1X/4 WEEKS SUBCUTANEOUS
     Route: 058
     Dates: start: 20101007

REACTIONS (4)
  - PYREXIA [None]
  - NASAL CONGESTION [None]
  - SNEEZING [None]
  - RESTLESSNESS [None]
